FAERS Safety Report 12770645 (Version 1)
Quarter: 2016Q3

REPORT INFORMATION
  Report Type: Spontaneous
  Country: GB (occurrence: GB)
  Receive Date: 20160922
  Receipt Date: 20160922
  Transmission Date: 20161109
  Serious: Yes (Hospitalization)
  Sender: FDA-Public Use
  Company Number: GB-JNJFOC-20160912722

PATIENT
  Age: 51 Year
  Sex: Male

DRUGS (5)
  1. IBUPROFEN. [Suspect]
     Active Substance: IBUPROFEN
     Indication: TOOTHACHE
     Route: 065
  2. PARACETAMOL [Suspect]
     Active Substance: ACETAMINOPHEN
     Indication: TOOTHACHE
     Dosage: WHEN NEEDED PER DAY
     Route: 065
  3. IBUPROFEN. [Suspect]
     Active Substance: IBUPROFEN
     Route: 065
  4. COCODAMOL [Suspect]
     Active Substance: ACETAMINOPHEN\CODEINE PHOSPHATE
     Indication: TOOTHACHE
     Dosage: DOSE: 30/500 UNITS UNSPECIFIED
     Route: 065
  5. PARACETAMOL [Suspect]
     Active Substance: ACETAMINOPHEN
     Route: 065

REACTIONS (2)
  - Drug administration error [Recovered/Resolved]
  - Overdose [Recovered/Resolved]
